FAERS Safety Report 10790908 (Version 3)
Quarter: 2015Q1

REPORT INFORMATION
  Report Type: Spontaneous
  Country: US (occurrence: US)
  Receive Date: 20150212
  Receipt Date: 20150306
  Transmission Date: 20150721
  Serious: Yes (Death, Hospitalization, Other)
  Sender: FDA-Public Use
  Company Number: US-BAXTER-2014BAX077349

PATIENT
  Sex: Male

DRUGS (2)
  1. DIANEAL LOW CALCIUM PERITONEAL DIALYSIS SOLUTION WITH DEXTROSE [Suspect]
     Active Substance: CALCIUM CHLORIDE\DEXTROSE\MAGNESIUM CHLORIDE\SODIUM CHLORIDE\SODIUM LACTATE
     Indication: CHRONIC KIDNEY DISEASE
     Route: 033
     Dates: start: 2010, end: 20150205
  2. PLAVIX [Suspect]
     Active Substance: CLOPIDOGREL BISULFATE
     Indication: ANTIPLATELET THERAPY
     Route: 048

REACTIONS (11)
  - Coronary artery disease [Fatal]
  - Asthenia [Unknown]
  - Pneumonia [Recovered/Resolved]
  - Aspiration [Recovered/Resolved]
  - Decreased appetite [Recovered/Resolved]
  - Haemorrhoidal haemorrhage [Recovered/Resolved]
  - Procedural complication [Recovered/Resolved]
  - Depression [Recovering/Resolving]
  - Haemorrhoids [Recovered/Resolved]
  - Mobility decreased [Recovering/Resolving]
  - Anal haemorrhage [Recovered/Resolved]

NARRATIVE: CASE EVENT DATE: 2014
